FAERS Safety Report 7860853-1 (Version None)
Quarter: 2011Q4

REPORT INFORMATION
  Report Type: 
  Country: None (occurrence: None)
  Receive Date: 20111027
  Receipt Date: 20111017
  Transmission Date: 20120403
  Serious: Yes (Hospitalization, Disabling, Other)
  Sender: FDA-Public Use
  Company Number: FR-BAYER-2011-083451

PATIENT
  Age: 54 Year
  Sex: Male
  Weight: 70 kg

DRUGS (7)
  1. PREDNISOLONE [Concomitant]
     Dosage: DAILY DOSE 60 MG
  2. MOXIFLOXACIN HCL [Suspect]
     Indication: BRONCHITIS
  3. MOXIFLOXACIN HCL [Suspect]
     Indication: COUGH
     Dosage: UNK
     Dates: start: 20100419
  4. METHOTREXATE [Concomitant]
     Indication: RHEUMATOID ARTHRITIS
  5. STROMECTOL [Concomitant]
     Indication: GASTROINTESTINAL DISORDER
  6. PREDNISONE [Concomitant]
     Dosage: DAILY DOSE 20 MG
  7. CORTICOSTEROIDS [Concomitant]
     Indication: RHEUMATOID ARTHRITIS
     Dosage: DAILY DOSE 10 MG

REACTIONS (27)
  - CHOLESTASIS [None]
  - NIGHT SWEATS [None]
  - MALNUTRITION [None]
  - ANAEMIA [None]
  - FASCIOLIASIS [None]
  - MYCOBACTERIUM TUBERCULOSIS COMPLEX TEST POSITIVE [None]
  - WEIGHT DECREASED [None]
  - PSYCHOMOTOR RETARDATION [None]
  - EOSINOPHILIA [None]
  - DERMATITIS ALLERGIC [None]
  - VOMITING [None]
  - CYTOLYTIC HEPATITIS [None]
  - CYTOMEGALOVIRUS INFECTION [None]
  - CANDIDIASIS [None]
  - PRURITUS ALLERGIC [None]
  - LUNG DISORDER [None]
  - COUGH [None]
  - HEPATIC ENCEPHALOPATHY [None]
  - BACTERIAL SEPSIS [None]
  - ASCITES [None]
  - PRURITUS [None]
  - HEPATIC FAILURE [None]
  - PYREXIA [None]
  - THROMBOCYTOPENIA [None]
  - INFECTIOUS PERITONITIS [None]
  - HAEMOLYTIC ANAEMIA [None]
  - ASTHENIA [None]
